FAERS Safety Report 10596333 (Version 1)
Quarter: 2014Q4

REPORT INFORMATION
  Report Type: Spontaneous
  Country: US (occurrence: US)
  Receive Date: 20141120
  Receipt Date: 20141120
  Transmission Date: 20150529
  Serious: No
  Sender: FDA-Public Use
  Company Number: US-BAYER-2014-172358

PATIENT
  Age: 70 Year
  Sex: Male
  Weight: 83 kg

DRUGS (2)
  1. ALEVE [Suspect]
     Active Substance: NAPROXEN SODIUM
     Indication: HEADACHE
     Dosage: 2 DF, QD
     Route: 048
     Dates: start: 2014, end: 201411
  2. NOVOLIN [INSULIN] [Concomitant]

REACTIONS (1)
  - Incorrect drug administration duration [None]

NARRATIVE: CASE EVENT DATE: 2014
